FAERS Safety Report 4974033-0 (Version None)
Quarter: 2006Q2

REPORT INFORMATION
  Report Type: 
  Country: None (occurrence: None)
  Receive Date: 20060410
  Receipt Date: 20060327
  Transmission Date: 20061013
  Serious: Yes (Other)
  Sender: FDA-Public Use
  Company Number: 2006022635

PATIENT
  Sex: Female
  Weight: 79.8331 kg

DRUGS (7)
  1. DILANTIN [Suspect]
     Indication: CONVULSION
  2. FLAGYL [Suspect]
     Indication: ILL-DEFINED DISORDER
     Dates: start: 20040501
  3. MOTRIN [Suspect]
     Indication: ILL-DEFINED DISORDER
  4. DEPAKENE [Suspect]
     Indication: ILL-DEFINED DISORDER
  5. TEGRETOL [Suspect]
     Indication: ILL-DEFINED DISORDER
  6. MYSOLINE [Suspect]
     Indication: ILL-DEFINED DISORDER
  7. CIPRO [Concomitant]

REACTIONS (11)
  - APPENDICECTOMY [None]
  - ARTHRITIS [None]
  - BALANCE DISORDER [None]
  - BLINDNESS [None]
  - CONVULSION [None]
  - DIZZINESS [None]
  - FALL [None]
  - GINGIVAL DISORDER [None]
  - ONYCHOMADESIS [None]
  - TOOTH LOSS [None]
  - WEIGHT DECREASED [None]
